FAERS Safety Report 6266948-0 (Version None)
Quarter: 2009Q3

REPORT INFORMATION
  Report Type: 
  Country: None (occurrence: None)
  Receive Date: 20090714
  Receipt Date: 20090706
  Transmission Date: 20100115
  Serious: Yes (Hospitalization)
  Sender: FDA-Public Use
  Company Number: JP-ASTRAZENECA-2009SE02616

PATIENT
  Age: 58 Year
  Sex: Female
  Weight: 57 kg

DRUGS (9)
  1. ARIMIDEX [Suspect]
     Indication: BREAST CANCER
     Route: 048
     Dates: start: 20090101
  2. ZOSYN [Concomitant]
     Indication: PNEUMONIA
     Route: 042
     Dates: start: 20090421, end: 20090424
  3. PAZUCROSS [Concomitant]
     Indication: PNEUMONIA
     Route: 042
     Dates: start: 20090425, end: 20090427
  4. PAZUCROSS [Concomitant]
     Route: 042
     Dates: start: 20090501, end: 20090514
  5. DALACIN-S [Concomitant]
     Indication: PNEUMONIA
     Route: 042
     Dates: start: 20090425, end: 20090430
  6. MEROPEN [Concomitant]
     Indication: PNEUMONIA
     Route: 042
     Dates: start: 20090427, end: 20090430
  7. PREDNISOLONE [Concomitant]
     Indication: PNEUMONIA
     Route: 048
     Dates: start: 20090503, end: 20090521
  8. CRAVIT [Concomitant]
     Indication: PNEUMONIA
     Route: 048
     Dates: start: 20090515, end: 20090521
  9. ZITHROMAX [Concomitant]
     Indication: PNEUMONIA
     Dosage: DOSE UNKNOWN
     Route: 048
     Dates: start: 20090525

REACTIONS (1)
  - INTERSTITIAL LUNG DISEASE [None]
